FAERS Safety Report 5623627-8 (Version None)
Quarter: 2008Q1

REPORT INFORMATION
  Report Type: 
  Country: None (occurrence: None)
  Receive Date: 20080212
  Receipt Date: 20080204
  Transmission Date: 20080703
  Serious: Yes (Other)
  Sender: FDA-Public Use
  Company Number: US-ELI_LILLY_AND_COMPANY-US200712005012

PATIENT
  Sex: Female
  Weight: 63.492 kg

DRUGS (12)
  1. BYETTA [Suspect]
     Dosage: 5 UG, 2/D
     Route: 058
     Dates: start: 20070907, end: 20070928
  2. BYETTA [Suspect]
     Dosage: 10 UG, 2/D
     Route: 058
     Dates: start: 20070928, end: 20071101
  3. BYETTA [Suspect]
     Dosage: 5 UG, UNKNOWN
     Route: 058
     Dates: start: 20071101, end: 20071101
  4. GLUCOPHAGE XR [Concomitant]
     Dosage: 500 MG, 2/D
     Route: 065
     Dates: start: 20021007, end: 20021210
  5. GLUCOPHAGE XR [Concomitant]
     Dosage: 1500 MG, DAILY (1/D)
     Route: 065
     Dates: start: 20021210, end: 20070928
  6. ACTOS [Concomitant]
     Dosage: 45 MG, DAILY (1/D)
     Route: 065
     Dates: start: 20060629
  7. GLYBURIDE [Concomitant]
     Dosage: 4 MG, DAILY (1/D)
     Route: 065
     Dates: start: 20060101
  8. HYZAAR [Concomitant]
     Indication: HYPERTENSION
     Dosage: UNK, UNKNOWN
     Route: 065
     Dates: start: 20041207
  9. ASPIRIN [Concomitant]
     Indication: BLOOD PRESSURE
     Dosage: 81 MG, UNKNOWN
     Route: 065
     Dates: start: 20060329
  10. BENICAR [Concomitant]
     Indication: HYPERTENSION
     Dosage: 40 MG, UNKNOWN
     Route: 065
     Dates: start: 20060629
  11. AMARYL [Concomitant]
     Dosage: 2 MG, UNK
     Dates: start: 20021210
  12. AMARYL [Concomitant]
     Dosage: 4 MG, UNKNOWN
     Route: 065

REACTIONS (4)
  - DECREASED APPETITE [None]
  - HYPOGLYCAEMIC UNCONSCIOUSNESS [None]
  - NAUSEA [None]
  - WEIGHT DECREASED [None]
